FAERS Safety Report 9822841 (Version 2)
Quarter: 2014Q1

REPORT INFORMATION
  Report Type: Spontaneous
  Country: JP (occurrence: JP)
  Receive Date: 20140116
  Receipt Date: 20140306
  Transmission Date: 20141002
  Serious: Yes (Other)
  Sender: FDA-Public Use
  Company Number: JP-ASTRAZENECA-2014SE02484

PATIENT
  Age: 63 Year
  Sex: Male

DRUGS (2)
  1. ZOLADEX [Suspect]
     Indication: PROSTATE CANCER
     Dosage: DOSE UNKNOWN
     Route: 058
     Dates: start: 201103
  2. GENERIC BICALUTAMIDE (NON-AZ PRODUCT) [Suspect]
     Indication: PROSTATE CANCER
     Route: 048
     Dates: start: 201103

REACTIONS (1)
  - Deep vein thrombosis [Recovering/Resolving]
